FAERS Safety Report 13883961 (Version 3)
Quarter: 2017Q4

REPORT INFORMATION
  Report Type: Spontaneous
  Country: US (occurrence: US)
  Receive Date: 20170820
  Receipt Date: 20171110
  Transmission Date: 20180320
  Serious: Yes (Hospitalization, Other)
  Sender: FDA-Public Use
  Company Number: PHEH2017US025999

PATIENT
  Sex: Male

DRUGS (2)
  1. LENVIMA [Suspect]
     Active Substance: LENVATINIB
     Indication: RENAL NEOPLASM
     Dosage: 18 MG, QD
     Route: 048
     Dates: start: 20170729
  2. AFINITOR [Suspect]
     Active Substance: EVEROLIMUS
     Indication: RENAL NEOPLASM
     Dosage: UNK
     Route: 065

REACTIONS (15)
  - Fatigue [Unknown]
  - Chills [Unknown]
  - Thrombosis [Recovering/Resolving]
  - Pneumonia [Recovering/Resolving]
  - Diarrhoea [Unknown]
  - Tumour pain [Unknown]
  - Tremor [Unknown]
  - Hypertension [Unknown]
  - Epistaxis [Unknown]
  - Dyspnoea [Recovering/Resolving]
  - Constipation [Unknown]
  - Electrocardiogram abnormal [Unknown]
  - Weight decreased [Unknown]
  - Decreased appetite [Unknown]
  - Asthenia [Unknown]
